FAERS Safety Report 22801933 (Version 2)
Quarter: 2023Q4

REPORT INFORMATION
  Report Type: Report from Study
  Country: US (occurrence: US)
  Receive Date: 20230809
  Receipt Date: 20231227
  Transmission Date: 20240109
  Serious: Yes (Hospitalization, Other)
  Sender: FDA-Public Use
  Company Number: US-ABBVIE-5359147

PATIENT
  Age: 63 Year
  Sex: Female

DRUGS (1)
  1. SKYRIZI [Suspect]
     Active Substance: RISANKIZUMAB-RZAA
     Indication: Product used for unknown indication
     Route: 058
     Dates: start: 20210222, end: 20230601

REACTIONS (4)
  - Intestinal perforation [Recovering/Resolving]
  - Condition aggravated [Recovering/Resolving]
  - Illness [Unknown]
  - Stress [Unknown]

NARRATIVE: CASE EVENT DATE: 20230610
